FAERS Safety Report 5521569-X (Version None)
Quarter: 2007Q4

REPORT INFORMATION
  Report Type: 
  Country: None (occurrence: None)
  Receive Date: 20071120
  Receipt Date: 20071113
  Transmission Date: 20080405
  Serious: Yes (Death)
  Sender: FDA-Public Use
  Company Number: JP-BAYER-200710810BYL

PATIENT
  Age: 89 Year
  Sex: Male
  Weight: 50 kg

DRUGS (5)
  1. AVELOX [Suspect]
     Indication: BRONCHITIS
     Dosage: TOTAL DAILY DOSE: 400 MG  UNIT DOSE: 400 MG
     Route: 048
     Dates: start: 20071029
  2. HOKUNALIN:TAPE [Concomitant]
     Dosage: TOTAL DAILY DOSE: 2 MG  UNIT DOSE: 2 MG
     Route: 062
     Dates: start: 20050207
  3. MUCODYNE [Concomitant]
     Dosage: TOTAL DAILY DOSE: 1500 MG  UNIT DOSE: 500 MG
     Route: 048
     Dates: start: 20050207
  4. MUCOSOLVAN [Concomitant]
     Dosage: TOTAL DAILY DOSE: 45 MG  UNIT DOSE: 15 MG
     Route: 048
     Dates: start: 20050207
  5. VASOLAN [Concomitant]
     Dosage: TOTAL DAILY DOSE: 120 MG  UNIT DOSE: 40 MG
     Route: 048
     Dates: start: 20050201

REACTIONS (1)
  - DEATH [None]
